FAERS Safety Report 12190527 (Version 1)
Quarter: 2016Q1

REPORT INFORMATION
  Report Type: Spontaneous
  Country: FR (occurrence: FR)
  Receive Date: 20160318
  Receipt Date: 20160318
  Transmission Date: 20160526
  Serious: Yes (Hospitalization)
  Sender: FDA-Public Use
  Company Number: FR-ASTRAZENECA-2016SE29073

PATIENT
  Age: 77 Year
  Sex: Male
  Weight: 100 kg

DRUGS (6)
  1. INEXIUM [Suspect]
     Active Substance: ESOMEPRAZOLE
     Indication: ULCER
     Route: 048
     Dates: end: 20160212
  2. ALDACTONE [Suspect]
     Active Substance: SPIRONOLACTONE
     Indication: CARDIOMYOPATHY
     Route: 065
     Dates: end: 20160212
  3. LEVOTHYROX [Concomitant]
     Active Substance: LEVOTHYROXINE
     Dates: end: 20160212
  4. LASILIX [Suspect]
     Active Substance: FUROSEMIDE
     Indication: CARDIOMYOPATHY
     Dosage: 40MG, 3 DF IN THE MORNING AND 2 DF AT LUNCH
     Route: 065
     Dates: start: 201402, end: 20160212
  5. COVERSYL [Concomitant]
     Active Substance: PERINDOPRIL
     Dates: end: 20160212
  6. PREVISCAN [Concomitant]
     Active Substance: FLUINDIONE
     Dosage: 20MG, 0.75 DF IN THE EVENING
     Dates: end: 20160212

REACTIONS (3)
  - Hyponatraemia [Recovering/Resolving]
  - Seizure [Recovered/Resolved]
  - Confusional state [Recovered/Resolved]

NARRATIVE: CASE EVENT DATE: 201602
